FAERS Safety Report 24106680 (Version 2)
Quarter: 2024Q3

REPORT INFORMATION
  Report Type: Report from Study
  Country: US (occurrence: US)
  Receive Date: 20240717
  Receipt Date: 20240902
  Transmission Date: 20241016
  Serious: Yes (Hospitalization, Other)
  Sender: ABBVIE
  Company Number: US-ABBVIE-5841017

PATIENT
  Sex: Female

DRUGS (1)
  1. HUMIRA [Suspect]
     Active Substance: ADALIMUMAB
     Indication: Psoriasis
     Dosage: STRENGTH: 40 MG
     Route: 058
     Dates: start: 2002, end: 2024

REACTIONS (26)
  - Forearm fracture [Recovered/Resolved]
  - Myocardial infarction [Recovered/Resolved]
  - Fall [Recovered/Resolved]
  - Coma [Recovered/Resolved]
  - Dyspnoea [Not Recovered/Not Resolved]
  - Joint dislocation [Recovered/Resolved]
  - Spinal cord disorder [Not Recovered/Not Resolved]
  - Confusional state [Recovered/Resolved]
  - Cerebrovascular accident [Recovered/Resolved]
  - Muscle atrophy [Recovered/Resolved]
  - Bone density decreased [Not Recovered/Not Resolved]
  - Neck pain [Not Recovered/Not Resolved]
  - Intervertebral disc protrusion [Not Recovered/Not Resolved]
  - Spinal osteoarthritis [Not Recovered/Not Resolved]
  - Visual impairment [Unknown]
  - Migraine [Not Recovered/Not Resolved]
  - COVID-19 [Recovered/Resolved]
  - Diabetes mellitus [Recovered/Resolved]
  - Cataract [Not Recovered/Not Resolved]
  - Oxygen saturation decreased [Recovering/Resolving]
  - Neuropathy peripheral [Not Recovered/Not Resolved]
  - Arthralgia [Not Recovered/Not Resolved]
  - Dysstasia [Recovered/Resolved]
  - Venous oxygen saturation decreased [Recovering/Resolving]
  - Procedural haemorrhage [Recovered/Resolved]
  - Tooth disorder [Recovering/Resolving]

NARRATIVE: CASE EVENT DATE: 20140101
